FAERS Safety Report 7984311 (Version 7)
Quarter: 2013Q1

REPORT INFORMATION
  Report Type: Spontaneous
  Country: US (occurrence: US)
  Receive Date: 20110609
  Receipt Date: 20130116
  Transmission Date: 20140127
  Serious: Yes (Other)
  Sender: FDA-Public Use
  Company Number: US-ASTRAZENECA-2011SE33875

PATIENT
  Age: 75 Year
  Sex: Female

DRUGS (20)
  1. SYMBICORT PMDI [Suspect]
     Dosage: 80/4.5 MCG, 2 PUFFS ONCE A DAY
     Route: 055
  2. SYMBICORT PMDI [Suspect]
     Dosage: 160/4.5 MCG, 2 PUFFS TWO TIMES A DAY
     Route: 055
     Dates: start: 201103
  3. ATACAND [Suspect]
     Indication: HYPERTENSION
     Route: 048
  4. NEXIUM [Suspect]
     Route: 048
  5. CARTIA [Concomitant]
  6. LEVOXYL [Concomitant]
  7. ZYRTEC [Concomitant]
     Indication: HYPERSENSITIVITY
  8. SINGULAIR [Concomitant]
     Dosage: 1 A DAY
  9. ALENDRONATE [Concomitant]
  10. QVAR [Concomitant]
  11. CARVEDILOL [Concomitant]
  12. ALBUTEROL [Concomitant]
  13. AYR [Concomitant]
  14. VAPO RUB [Concomitant]
  15. BENAFIBER [Concomitant]
  16. VITAMIN - ES [Concomitant]
  17. ONE A DAY [Concomitant]
  18. FISH OIL [Concomitant]
  19. CALCIUM D3 [Concomitant]
  20. E SUP [Concomitant]

REACTIONS (13)
  - Spinal fracture [Unknown]
  - Cataract [Unknown]
  - Asthma [Unknown]
  - Lung disorder [Unknown]
  - Lung infection [Unknown]
  - Back injury [Unknown]
  - Back pain [Unknown]
  - Hypertension [Unknown]
  - Multiple allergies [Unknown]
  - Haemorrhoids [Unknown]
  - Dry eye [Unknown]
  - Gastrooesophageal reflux disease [Unknown]
  - Pruritus [Unknown]
